FAERS Safety Report 13055753 (Version 1)
Quarter: 2016Q4

REPORT INFORMATION
  Report Type: Spontaneous
  Country: MY (occurrence: MY)
  Receive Date: 20161222
  Receipt Date: 20161222
  Transmission Date: 20170207
  Serious: Yes (Hospitalization, Other)
  Sender: FDA-Public Use
  Company Number: MY-PRINSTON PHARMACEUTICAL INC.-2016PRN00358

PATIENT
  Age: 57 Year
  Sex: Male

DRUGS (6)
  1. CLONAZEPAM. [Concomitant]
     Active Substance: CLONAZEPAM
     Dosage: 2 MG, 1X/DAY
     Route: 048
  2. RISPERIDONE. [Suspect]
     Active Substance: RISPERIDONE
     Dosage: 2 MG, 2X/DAY
     Route: 048
  3. ASENAPINE [Suspect]
     Active Substance: ASENAPINE
     Indication: SCHIZOPHRENIA
     Dosage: 20 MG, 1X/DAY
     Route: 048
  4. RISPERIDONE. [Suspect]
     Active Substance: RISPERIDONE
     Indication: SCHIZOPHRENIA
     Dosage: 2 MG, 1X/DAY
     Route: 048
  5. RISPERIDONE. [Suspect]
     Active Substance: RISPERIDONE
     Dosage: 25 MG, ONCE
     Route: 030
  6. ARIPIPRAZOLE. [Suspect]
     Active Substance: ARIPIPRAZOLE
     Indication: SCHIZOPHRENIA
     Dosage: 30 MG, 1X/DAY
     Route: 048

REACTIONS (3)
  - Metabolic acidosis [Unknown]
  - Rhabdomyolysis [Unknown]
  - Acute kidney injury [Recovered/Resolved]
